FAERS Safety Report 22028431 (Version 1)
Quarter: 2023Q1

REPORT INFORMATION
  Report Type: Spontaneous
  Country: US (occurrence: None)
  Receive Date: 20230223
  Receipt Date: 20230223
  Transmission Date: 20230417
  Serious: No
  Sender: FDA-Public Use
  Company Number: US-ROCHE-3158622

PATIENT
  Sex: Male

DRUGS (2)
  1. NUTROPIN [Suspect]
     Active Substance: SOMATROPIN
     Indication: Short stature
     Dosage: STRENGTH 20 MG/ML, NUSPIN 20 PEN
     Route: 058
     Dates: start: 20220708
  2. NUTROPIN [Suspect]
     Active Substance: SOMATROPIN

REACTIONS (4)
  - Product administration error [Unknown]
  - Drug delivery system issue [Unknown]
  - Product dose omission issue [Unknown]
  - No adverse event [Unknown]
